FAERS Safety Report 24296851 (Version 3)
Quarter: 2025Q1

REPORT INFORMATION
  Report Type: Spontaneous
  Country: US (occurrence: US)
  Receive Date: 20240909
  Receipt Date: 20250310
  Transmission Date: 20250408
  Serious: Yes (Other)
  Sender: ABBVIE
  Company Number: US-ABBVIE-5905131

PATIENT
  Sex: Male

DRUGS (2)
  1. BOTOX [Suspect]
     Active Substance: ONABOTULINUMTOXINA
     Indication: Maternal exposure timing unspecified
     Route: 064
  2. NURTEC ODT [Suspect]
     Active Substance: RIMEGEPANT SULFATE
     Indication: Maternal exposure timing unspecified
     Route: 064

REACTIONS (3)
  - Foetal macrosomia [Recovered/Resolved]
  - Foetal exposure during pregnancy [Unknown]
  - Postnatal growth restriction [Recovered/Resolved]

NARRATIVE: CASE EVENT DATE: 20241011
